FAERS Safety Report 25459158 (Version 2)
Quarter: 2025Q4

REPORT INFORMATION
  Report Type: Spontaneous
  Country: US (occurrence: US)
  Receive Date: 20250620
  Receipt Date: 20251007
  Transmission Date: 20260118
  Serious: Yes (Other)
  Sender: SANOFI AVENTIS
  Company Number: US-SA-2025SA174715

PATIENT
  Age: 69 Year
  Sex: Female

DRUGS (2)
  1. DUPIXENT [Suspect]
     Active Substance: DUPILUMAB
     Indication: Dermatitis atopic
     Dosage: 300 MG, QOW
     Route: 058
  2. DUPIXENT [Suspect]
     Active Substance: DUPILUMAB
     Indication: Eczema

REACTIONS (6)
  - Skin cancer [Unknown]
  - Transient acantholytic dermatosis [Unknown]
  - Contusion [Not Recovered/Not Resolved]
  - Dry skin [Unknown]
  - Pruritus [Recovered/Resolved]
  - Drug effective for unapproved indication [Unknown]

NARRATIVE: CASE EVENT DATE: 20250101
